FAERS Safety Report 19029161 (Version 2)
Quarter: 2021Q2

REPORT INFORMATION
  Report Type: Spontaneous
  Country: JP (occurrence: JP)
  Receive Date: 20210318
  Receipt Date: 20210409
  Transmission Date: 20210717
  Serious: Yes (Hospitalization)
  Sender: FDA-Public Use
  Company Number: JP-FERRINGPH-2021FE01641

PATIENT
  Age: 3 Year
  Sex: Male

DRUGS (3)
  1. MINIRINMELT [Suspect]
     Active Substance: DESMOPRESSIN ACETATE
     Indication: DIABETES INSIPIDUS
     Dosage: 3.75 UG
     Route: 060
     Dates: start: 20210302
  2. MINIRINMELT [Suspect]
     Active Substance: DESMOPRESSIN ACETATE
     Dosage: 60 UG
     Route: 060
     Dates: start: 201806
  3. MINIRINMELT [Suspect]
     Active Substance: DESMOPRESSIN ACETATE
     Dosage: 3.75 UG
     Route: 050
     Dates: start: 20210302

REACTIONS (4)
  - Hospitalisation [Unknown]
  - Incorrect route of product administration [Recovered/Resolved]
  - Wrong technique in product usage process [Unknown]
  - Erythema [Recovered/Resolved]

NARRATIVE: CASE EVENT DATE: 20210302
